FAERS Safety Report 10240545 (Version 2)
Quarter: 2014Q2

REPORT INFORMATION
  Report Type: Spontaneous
  Country: HR (occurrence: HR)
  Receive Date: 20140617
  Receipt Date: 20140624
  Transmission Date: 20141212
  Serious: Yes (Death)
  Sender: FDA-Public Use
  Company Number: PHHY2014HR074450

PATIENT
  Sex: Male

DRUGS (1)
  1. LEPONEX [Suspect]
     Dosage: 2 DF

REACTIONS (2)
  - Death [Fatal]
  - Wrong technique in drug usage process [Unknown]
